FAERS Safety Report 5563956-X (Version None)
Quarter: 2007Q4

REPORT INFORMATION
  Report Type: 
  Country: None (occurrence: None)
  Receive Date: 20071217
  Receipt Date: 20071205
  Transmission Date: 20080405
  Serious: Yes (Other)
  Sender: FDA-Public Use
  Company Number: US-PFIZER INC-2007102887

PATIENT
  Sex: Male
  Weight: 85.7 kg

DRUGS (8)
  1. LYRICA [Suspect]
     Indication: BACK PAIN
  2. TRICOR [Concomitant]
  3. ZOCOR [Concomitant]
  4. ENALAPRIL [Concomitant]
  5. ACETYLSALICYLIC ACID SRT [Concomitant]
  6. HYDROCHLOROTHIAZIDE [Concomitant]
  7. AMLODIPINE [Concomitant]
  8. METOPROLOL [Concomitant]

REACTIONS (3)
  - HERPES ZOSTER [None]
  - PRURITUS [None]
  - SKIN HAEMORRHAGE [None]
